FAERS Safety Report 7425409-3 (Version None)
Quarter: 2011Q2

REPORT INFORMATION
  Report Type: 
  Country: None (occurrence: None)
  Receive Date: 20110415
  Receipt Date: 20110415
  Transmission Date: 20111010
  Serious: No
  Sender: FDA-Public Use
  Company Number: None

PATIENT
  Age: 53 Year
  Sex: Male
  Weight: 148 kg

DRUGS (2)
  1. MORPHINE [Suspect]
     Dosage: 10 MG IV
     Route: 042
     Dates: start: 20110412, end: 20110412
  2. MORPHINE [Suspect]
     Dosage: 4 MG IV
     Route: 042
     Dates: start: 20110412, end: 20110412

REACTIONS (1)
  - INFUSION SITE URTICARIA [None]
